FAERS Safety Report 18457419 (Version 8)
Quarter: 2021Q1

REPORT INFORMATION
  Report Type: Report from Study
  Country: DE (occurrence: DE)
  Receive Date: 20201030
  Receipt Date: 20210225
  Transmission Date: 20210419
  Serious: Yes (Other)
  Sender: FDA-Public Use
  Company Number: DE-CELGENEUS-DEU-20201006959

PATIENT
  Age: 59 Year
  Sex: Male
  Weight: 73 kg

DRUGS (18)
  1. MELPHALAN. [Concomitant]
     Active Substance: MELPHALAN
     Dosage: HIGH DOSE
     Route: 041
     Dates: start: 20160311, end: 20160311
  2. CYCLOPHOSPHAMIDE. [Concomitant]
     Active Substance: CYCLOPHOSPHAMIDE
     Indication: HAEMATOPOIETIC STEM CELL MOBILISATION
     Dosage: 2.5 G/SQ. M
     Route: 042
     Dates: start: 20151016, end: 20151016
  3. CASPOFUNGIN [Concomitant]
     Active Substance: CASPOFUNGIN
     Indication: PNEUMONIA FUNGAL
  4. REVLIMID [Suspect]
     Active Substance: LENALIDOMIDE
     Dosage: 10 MILLIGRAM
     Route: 048
     Dates: start: 20160615, end: 20190615
  5. ADRIAMYCIN [Suspect]
     Active Substance: DOXORUBICIN HYDROCHLORIDE
     Indication: PLASMA CELL MYELOMA
     Dosage: 6 MILLIGRAM/SQ. METER
     Route: 040
     Dates: start: 20150630, end: 20150918
  6. MELPHALAN. [Concomitant]
     Active Substance: MELPHALAN
     Indication: AUTOLOGOUS HAEMATOPOIETIC STEM CELL TRANSPLANT
     Dosage: HIGH DOSE
     Route: 042
     Dates: start: 20151127, end: 20151127
  7. DEXAMETHASONE. [Suspect]
     Active Substance: DEXAMETHASONE
     Dosage: PRELIMINARY PHASE
     Route: 065
     Dates: start: 20201027
  8. PEGFILGRASTIM [Suspect]
     Active Substance: PEGFILGRASTIM
     Indication: PLASMA CELL MYELOMA
     Dosage: 6 MILLIGRAM
     Route: 058
     Dates: start: 20150704, end: 20150919
  9. ETOPOSIDE. [Concomitant]
     Active Substance: ETOPOSIDE
     Indication: HAEMATOPOIETIC STEM CELL MOBILISATION
     Dosage: 600 MILLIGRAM/SQ. METER
     Route: 042
     Dates: start: 20151016, end: 20151016
  10. REVLIMID [Suspect]
     Active Substance: LENALIDOMIDE
     Indication: PLASMA CELL MYELOMA
     Dosage: 25 MILLIGRAM
     Route: 048
     Dates: start: 20150630, end: 20150720
  11. REVLIMID [Suspect]
     Active Substance: LENALIDOMIDE
     Dosage: 15 MILLIGRAM
     Route: 048
     Dates: start: 20150819, end: 20151005
  12. CYCLOPHOSPHAMIDE. [Concomitant]
     Active Substance: CYCLOPHOSPHAMIDE
     Dosage: PRELIMINARY PHASE
     Route: 065
     Dates: start: 20201027
  13. AMBISOME [Concomitant]
     Active Substance: AMPHOTERICIN B
     Indication: STAPHYLOCOCCAL INFECTION
     Dosage: 250 MILLIGRAM
     Route: 041
     Dates: start: 20201117, end: 20201204
  14. DEXAMETHASONE. [Suspect]
     Active Substance: DEXAMETHASONE
     Indication: PLASMA CELL MYELOMA
     Route: 048
     Dates: start: 20150630, end: 20150719
  15. DEXAMETHASONE. [Suspect]
     Active Substance: DEXAMETHASONE
     Dosage: INDUCTION
     Route: 065
     Dates: start: 20201103
  16. AMBISOME [Concomitant]
     Active Substance: AMPHOTERICIN B
     Indication: PNEUMONIA FUNGAL
     Dosage: 500 MILLIGRAM
     Route: 041
     Dates: start: 20201205, end: 20201222
  17. CASPOFUNGIN [Concomitant]
     Active Substance: CASPOFUNGIN
     Indication: STAPHYLOCOCCAL INFECTION
     Dosage: 50 MILLIGRAM
     Route: 041
     Dates: start: 20201207, end: 20201215
  18. DEXAMETHASONE. [Suspect]
     Active Substance: DEXAMETHASONE
     Route: 048
     Dates: start: 20150819, end: 20150918

REACTIONS (2)
  - B precursor type acute leukaemia [Not Recovered/Not Resolved]
  - Acute lymphocytic leukaemia [Not Recovered/Not Resolved]

NARRATIVE: CASE EVENT DATE: 20201022
